FAERS Safety Report 5433817-5 (Version None)
Quarter: 2007Q3

REPORT INFORMATION
  Report Type: 
  Country: None (occurrence: None)
  Receive Date: 20070831
  Receipt Date: 20070625
  Transmission Date: 20080115
  Serious: No
  Sender: FDA-Public Use
  Company Number: A0659614A

PATIENT
  Age: 28 Year
  Sex: Female

DRUGS (2)
  1. ALLI [Suspect]
     Dates: start: 20070621
  2. LAXATIVE [Concomitant]

REACTIONS (3)
  - DISTURBANCE IN ATTENTION [None]
  - FEELING JITTERY [None]
  - PALPITATIONS [None]
